FAERS Safety Report 9015750 (Version 3)
Quarter: 2013Q3

REPORT INFORMATION
  Report Type: Spontaneous
  Country: AU (occurrence: None)
  Receive Date: 20130102
  Receipt Date: 20130918
  Transmission Date: 20140515
  Serious: Yes (Hospitalization)
  Sender: FDA-Public Use
  Company Number: ACO_33491_2012

PATIENT
  Age: 59 Year
  Sex: Female

DRUGS (8)
  1. FAMPRIDINE-SR (FAMPRIDINE) TABLET [Suspect]
     Indication: MULTIPLE SCLEROSIS
     Route: 048
     Dates: start: 20120704
  2. GABAPENTIN (GABAPENTIN) [Concomitant]
  3. BACLOFEN (BACLOFEN) (BACLOFEN) [Concomitant]
  4. PANAMAX (PARACETAMOL) [Concomitant]
  5. AMITRIPTYLINE (AMITRIPTYLINE) [Concomitant]
  6. NOTEN (ATENOLOL) [Concomitant]
  7. FISH OIL (FISH OIL) [Concomitant]
  8. VITAMIN D (ERGOCALCIFEROL) [Concomitant]

REACTIONS (7)
  - Gastrointestinal infection [None]
  - Asthenia [None]
  - Muscle spasticity [None]
  - Vomiting [None]
  - Gastrointestinal viral infection [None]
  - Lethargy [None]
  - Malaise [None]
